FAERS Safety Report 5249217-7 (Version None)
Quarter: 2007Q1

REPORT INFORMATION
  Report Type: 
  Country: None (occurrence: None)
  Receive Date: 20070228
  Receipt Date: 20070216
  Transmission Date: 20070707
  Serious: Yes (Hospitalization)
  Sender: FDA-Public Use
  Company Number: 2007PK00328

PATIENT
  Sex: Female

DRUGS (5)
  1. NEXIUM [Suspect]
     Indication: GASTROOESOPHAGEAL REFLUX DISEASE
     Route: 048
     Dates: end: 20070207
  2. NEXIUM [Suspect]
     Route: 048
     Dates: start: 20070207
  3. GINGIUM [Concomitant]
  4. HCT BETA [Concomitant]
  5. ACTONEL [Concomitant]

REACTIONS (1)
  - HAEMOPTYSIS [None]
